FAERS Safety Report 8760020 (Version 1)
Quarter: 2012Q4

REPORT INFORMATION
  Report Type: 
  Country: NO (occurrence: NO)
  Receive Date: 20120829
  Receipt Date: 20120829
  Transmission Date: 20130627
  Serious: Yes (Other)
  Sender: FDA-Public Use
  Company Number: PHHY2012NO074625

PATIENT
  Age: 41 Year
  Sex: Female

DRUGS (1)
  1. RITALIN [Suspect]

REACTIONS (6)
  - Anxiety [Unknown]
  - Apathy [Recovered/Resolved with Sequelae]
  - Pain in extremity [Recovering/Resolving]
  - Dry mouth [Recovered/Resolved]
  - Nausea [Recovering/Resolving]
  - Palpitations [Not Recovered/Not Resolved]
